FAERS Safety Report 7674146-9 (Version None)
Quarter: 2011Q3

REPORT INFORMATION
  Report Type: 
  Country: None (occurrence: None)
  Receive Date: 20110808
  Receipt Date: 20110728
  Transmission Date: 20111222
  Serious: Yes (Hospitalization, Other)
  Sender: FDA-Public Use
  Company Number: 2011S1000057

PATIENT
  Age: 76 Year
  Sex: Male
  Weight: 78.1094 kg

DRUGS (6)
  1. METOPROLOL TARTRATE [Concomitant]
  2. METHYLPREDNISOLONE [Concomitant]
  3. KRYSTEXXA [Suspect]
     Indication: GOUT
     Dosage: 8 MG;X1;IV
     Route: 042
     Dates: start: 20110722, end: 20110722
  4. LISINOPRIL [Concomitant]
  5. ACETAMINOPHEN AND HYDROCODONE BITARTRATE [Concomitant]
  6. ALLOPURINOL [Concomitant]

REACTIONS (8)
  - BLOOD LACTIC ACID INCREASED [None]
  - SOMNOLENCE [None]
  - URINARY INCONTINENCE [None]
  - HAEMOLYTIC ANAEMIA [None]
  - CONVULSION [None]
  - BRAIN NATRIURETIC PEPTIDE INCREASED [None]
  - RED BLOOD CELL SCHISTOCYTES PRESENT [None]
  - BLOOD CREATININE INCREASED [None]
